FAERS Safety Report 11254372 (Version 1)
Quarter: 2015Q3

REPORT INFORMATION
  Report Type: Spontaneous
  Country: US (occurrence: None)
  Receive Date: 20150708
  Receipt Date: 20150708
  Transmission Date: 20151125
  Serious: No
  Sender: FDA-Public Use
  Company Number: None

PATIENT
  Age: 73 Year
  Sex: Female
  Weight: 87.54 kg

DRUGS (5)
  1. NAPROXEN 500 MG TABLET TEVA PHARMACY USA [Suspect]
     Active Substance: NAPROXEN
     Indication: PAIN
     Dosage: DAILY 1 TABLET 2X
     Route: 048
     Dates: start: 20141212, end: 20141219
  2. ADVAIR HFA [Concomitant]
     Active Substance: FLUTICASONE PROPIONATE\SALMETEROL XINAFOATE
  3. SIMVASTATIN. [Concomitant]
     Active Substance: SIMVASTATIN
  4. BENAZEPRIL [Concomitant]
     Active Substance: BENAZEPRIL HYDROCHLORIDE
  5. AMLODIPINE [Concomitant]
     Active Substance: AMLODIPINE BESYLATE

REACTIONS (1)
  - Lip swelling [None]
